FAERS Safety Report 25734648 (Version 1)
Quarter: 2025Q3

REPORT INFORMATION
  Report Type: Spontaneous
  Country: EU (occurrence: EU)
  Receive Date: 20250828
  Receipt Date: 20250828
  Transmission Date: 20251020
  Serious: Yes (Hospitalization)
  Sender: MYLAN
  Company Number: EU-MYLANLABS-2025M1070969

PATIENT
  Age: 40 Year
  Sex: Male

DRUGS (9)
  1. AMIODARONE [Suspect]
     Active Substance: AMIODARONE
     Indication: Ventricular fibrillation
  2. AMIODARONE [Suspect]
     Active Substance: AMIODARONE
     Indication: Cardiogenic shock
  3. AMIODARONE [Suspect]
     Active Substance: AMIODARONE
     Indication: Arrhythmic storm
  4. SOTALOL [Suspect]
     Active Substance: SOTALOL
     Indication: Ventricular fibrillation
  5. SOTALOL [Suspect]
     Active Substance: SOTALOL
     Indication: Arrhythmic storm
  6. SOTALOL [Suspect]
     Active Substance: SOTALOL
     Indication: Cardiogenic shock
  7. MEXILETINE [Suspect]
     Active Substance: MEXILETINE
     Indication: Ventricular fibrillation
  8. MEXILETINE [Suspect]
     Active Substance: MEXILETINE
     Indication: Arrhythmic storm
  9. MEXILETINE [Suspect]
     Active Substance: MEXILETINE
     Indication: Cardiogenic shock

REACTIONS (1)
  - Drug ineffective [Unknown]
